FAERS Safety Report 23946198 (Version 1)
Quarter: 2024Q2

REPORT INFORMATION
  Report Type: Spontaneous
  Country: US (occurrence: None)
  Receive Date: 20240605
  Receipt Date: 20240605
  Transmission Date: 20240715
  Serious: Yes (Hospitalization)
  Sender: FDA-Public Use
  Company Number: None

PATIENT
  Age: 55 Year
  Sex: Female
  Weight: 70.2 kg

DRUGS (9)
  1. ENVARSUS XR [Suspect]
     Active Substance: TACROLIMUS
     Indication: Prophylaxis against transplant rejection
     Dosage: FREQUENCY : DAILY;?
     Route: 048
     Dates: start: 20240411
  2. MYCOPHENOLATE MOFETIL [Suspect]
     Active Substance: MYCOPHENOLATE MOFETIL
     Indication: Prophylaxis against transplant rejection
     Dosage: FREQUENCY : TWICE A DAY;?
     Route: 048
     Dates: start: 20240411
  3. MYCOPHENOLATE MOFETIL [Suspect]
     Active Substance: MYCOPHENOLATE MOFETIL
     Indication: Prophylaxis against transplant rejection
  4. PREDNISONE [Concomitant]
     Dates: start: 20240411
  5. OMEPRAZOLE [Concomitant]
     Active Substance: DONEPEZIL HYDROCHLORIDE\OMEPRAZOLE\OMEPRAZOLE MAGNESIUM
     Dates: start: 20240411
  6. VALGANCICLOVIR [Concomitant]
     Dates: start: 20240411
  7. URSODIOL [Concomitant]
     Active Substance: URSODIOL
     Dates: start: 20240411
  8. BACTRIM [Concomitant]
     Active Substance: SULFAMETHOXAZOLE\TRIMETHOPRIM
     Dates: start: 20240411
  9. Humulin N insulin [Concomitant]
     Dates: start: 20240411

REACTIONS (2)
  - Pulmonary oedema [None]
  - Therapy change [None]

NARRATIVE: CASE EVENT DATE: 20240521
